FAERS Safety Report 17614155 (Version 1)
Quarter: 2020Q2

REPORT INFORMATION
  Report Type: Spontaneous
  Country: US (occurrence: US)
  Receive Date: 20200402
  Receipt Date: 20200402
  Transmission Date: 20200713
  Serious: Yes (Hospitalization, Other)
  Sender: FDA-Public Use
  Company Number: US-APOTEX-2020AP009516

PATIENT
  Age: 63 Year
  Sex: Female

DRUGS (2)
  1. ALPRAZOLAM. [Concomitant]
     Active Substance: ALPRAZOLAM
     Indication: ANXIETY
     Dosage: UNK UNK, PRN
     Route: 065
  2. LITHIUM CARBONATE. [Suspect]
     Active Substance: LITHIUM CARBONATE
     Indication: BIPOLAR DISORDER
     Dosage: UNK
     Route: 065

REACTIONS (13)
  - Nausea [Recovered/Resolved]
  - Constipation [Recovered/Resolved]
  - Toxicity to various agents [Recovered/Resolved]
  - Vomiting [Recovered/Resolved]
  - Status epilepticus [Recovered/Resolved]
  - Blood creatinine increased [Recovering/Resolving]
  - Lethargy [Recovered/Resolved]
  - Memory impairment [Recovered/Resolved]
  - Muscular weakness [Recovered/Resolved]
  - Treatment noncompliance [Unknown]
  - Antipsychotic drug level increased [Recovered/Resolved]
  - Hyperreflexia [Recovered/Resolved]
  - Confusional state [Recovered/Resolved]
